FAERS Safety Report 19554338 (Version 1)
Quarter: 2021Q3

REPORT INFORMATION
  Report Type: Report from Study
  Country: AT (occurrence: AT)
  Receive Date: 20210715
  Receipt Date: 20210715
  Transmission Date: 20211014
  Serious: Yes (Hospitalization)
  Sender: FDA-Public Use
  Company Number: AT-ACCORD-231541

PATIENT
  Age: 42 Year
  Sex: Female
  Weight: 60 kg

DRUGS (30)
  1. LETROZOLE. [Suspect]
     Active Substance: LETROZOLE
     Indication: BREAST CANCER
     Route: 048
     Dates: start: 20180426
  2. LAFENE [Concomitant]
     Indication: GENERAL PHYSICAL HEALTH DETERIORATION
     Dosage: ONGOING?NOT CHECKED
     Dates: start: 20200225, end: 20200417
  3. MIRANAX [Concomitant]
     Dosage: ONGOING?NOT CHECKED
     Dates: start: 20161115, end: 20200417
  4. PARACETAMOL [Concomitant]
     Active Substance: ACETAMINOPHEN
     Indication: VOMITING
     Dosage: ONGOING?NOT CHECKED
     Dates: start: 20200228, end: 20200228
  5. LYRICA [Concomitant]
     Active Substance: PREGABALIN
     Indication: GENERAL PHYSICAL HEALTH DETERIORATION
     Dosage: ONGOING?NOT CHECKED
     Dates: start: 20200225, end: 20200417
  6. PARACETAMOL [Concomitant]
     Active Substance: ACETAMINOPHEN
     Indication: NAUSEA
     Dosage: ONGOING ?NOT CHECKED
     Dates: start: 20200228, end: 20200228
  7. TRASTUZUMAB. [Suspect]
     Active Substance: TRASTUZUMAB
     Indication: BREAST CANCER
     Dosage: Q3W ? EVERY 3 WEEKS
     Route: 042
     Dates: start: 20180503
  8. EMEND [Concomitant]
     Active Substance: APREPITANT
     Dosage: ONGOING?NOT CHECKED
     Dates: start: 20161115, end: 20200417
  9. ZOFRAN [Concomitant]
     Active Substance: ONDANSETRON HYDROCHLORIDE
     Dosage: ONGOING?NOT CHECKED
     Dates: start: 20161115, end: 20200417
  10. FORTECORTIN [Concomitant]
     Active Substance: DEXAMETHASONE
     Indication: VOMITING
     Dosage: ONGOING?NOT CHECKED
     Dates: start: 20170330, end: 20200417
  11. VENDAL [Concomitant]
     Active Substance: MORPHINE
     Indication: GENERAL PHYSICAL HEALTH DETERIORATION
     Dosage: ONGOING?NOT CHECKED
     Dates: start: 20200225, end: 20200417
  12. PARKEMED [Concomitant]
     Active Substance: MEFENAMIC ACID
     Dosage: ONGOING?NOT CHECKED
     Dates: start: 20170315, end: 20200417
  13. FENTANYL. [Concomitant]
     Active Substance: FENTANYL
     Indication: SPINAL PAIN
     Dosage: ONGOING? NOT CHECKED
     Dates: start: 20200225, end: 20200417
  14. FRAGMIN [Concomitant]
     Active Substance: DALTEPARIN SODIUM
     Dosage: ONGOING?NOT CHECKED
     Dates: start: 20200228, end: 20200311
  15. MACROGOL 3350/POTASSIUM CHLORIDE/SODIUM BICARBONATE/SODIUM CHLORIDE [Concomitant]
     Active Substance: POLYETHYLENE GLYCOL 3350\POTASSIUM CHLORIDE\SODIUM BICARBONATE\SODIUM CHLORIDE
     Indication: NAUSEA
     Dosage: ONGOING ? NOT CHECKED
     Dates: start: 20200306, end: 20200311
  16. FORTECORTIN [Concomitant]
     Active Substance: DEXAMETHASONE
     Indication: VOMITING
     Dosage: ONGOING ? NOT CHECKED
     Dates: start: 20200303, end: 20200309
  17. FORTECORTIN [Concomitant]
     Active Substance: DEXAMETHASONE
     Indication: NAUSEA
     Dosage: ONGOING? NOT CHECKED
     Dates: start: 20200229, end: 20200302
  18. PERTUZUMAB. [Suspect]
     Active Substance: PERTUZUMAB
     Indication: BREAST CANCER
     Route: 042
     Dates: start: 20181122, end: 20181122
  19. FENTANYL. [Concomitant]
     Active Substance: FENTANYL
     Indication: GENERAL PHYSICAL HEALTH DETERIORATION
     Dosage: ONGOING?NOT CHECKED
     Dates: start: 20190421, end: 20200224
  20. ZOFRAN [Concomitant]
     Active Substance: ONDANSETRON HYDROCHLORIDE
     Indication: VOMITING
     Dosage: ONGOING?NOT CHECKED
     Dates: start: 20200228, end: 20200228
  21. PERTUZUMAB. [Suspect]
     Active Substance: PERTUZUMAB
     Indication: BREAST CANCER
     Dosage: FREQUENCY: Q3W ? EVERY 3 WEEKS MOST RECENT DOSE PRIOR TO THE EVENT ON 22/NOV/2018
     Route: 042
     Dates: start: 201811
  22. ZOLPIDEM [Concomitant]
     Active Substance: ZOLPIDEM TARTRATE
     Indication: NAUSEA
     Dosage: ONGOING ?NOT CHECKED
     Dates: start: 20200228, end: 20200417
  23. NOVALGIN [Concomitant]
     Dosage: ONGOING?NOT CHECKED
     Dates: start: 20181117, end: 20200417
  24. MOLAXOLE [Concomitant]
     Active Substance: POLYETHYLENE GLYCOL 3350\POTASSIUM CHLORIDE\SODIUM BICARBONATE\SODIUM CHLORIDE
     Indication: VOMITING
     Dosage: ONGOING?NOT CHECKED
     Dates: start: 20200306, end: 20200311
  25. FORTECORTIN [Concomitant]
     Active Substance: DEXAMETHASONE
     Indication: VOMITING
     Dosage: ONGOING? NOT CHECKED
     Dates: start: 20200229, end: 20200302
  26. LEUPRORELIN [Suspect]
     Active Substance: LEUPROLIDE ACETATE
     Indication: BREAST CANCER
     Route: 058
     Dates: start: 201804
  27. ZOLPIDEM [Concomitant]
     Active Substance: ZOLPIDEM TARTRATE
     Indication: VOMITING
     Dosage: ONGOING?NOT CHECKED
     Dates: start: 20200228, end: 20200417
  28. DENOSUMAB [Suspect]
     Active Substance: DENOSUMAB
     Indication: BREAST CANCER
     Dosage: FREQUENCY: MONTHLY MOST RECENT DOSE PRIOR TO THE EVENT ON 19/MAR/2019
     Route: 058
     Dates: start: 201611, end: 20181129
  29. TRASTUZUMAB/EMTANSINE [Suspect]
     Active Substance: ADO-TRASTUZUMAB EMTANSINE
     Indication: BREAST CANCER
     Dosage: FREQUENCY: Q4W ? EVERY 4 WEEKS MOST RECENT DOSE PRIOR TO THE EVENT ON 21/AUG/2017
     Route: 042
     Dates: start: 20161114, end: 20170522
  30. MEXALEN [Concomitant]
     Active Substance: ACETAMINOPHEN
     Indication: METASTASES TO CENTRAL NERVOUS SYSTEM
     Dosage: ONGOING?NOT CHECKED
     Dates: start: 20170609, end: 20200417

REACTIONS (1)
  - Post herpetic neuralgia [Not Recovered/Not Resolved]

NARRATIVE: CASE EVENT DATE: 20200225
